FAERS Safety Report 9797182 (Version 1)
Quarter: 2014Q1

REPORT INFORMATION
  Report Type: Report from Study
  Country: BR (occurrence: BR)
  Receive Date: 20140106
  Receipt Date: 20140106
  Transmission Date: 20141002
  Serious: Yes (Other)
  Sender: FDA-Public Use
  Company Number: PHHY2013BR154139

PATIENT
  Age: 74 Year
  Sex: Female
  Weight: 78 kg

DRUGS (3)
  1. FORASEQ [Suspect]
     Indication: ASTHMA
     Dosage: 2 DF, Q12H
     Route: 055
     Dates: start: 2012
  2. CEWIN [Concomitant]
     Indication: INFLUENZA
     Dosage: 500 MG, UNK
     Dates: start: 20131229
  3. CEWIN [Concomitant]
     Indication: NASOPHARYNGITIS

REACTIONS (9)
  - Upper limb fracture [Recovering/Resolving]
  - Pneumonia [Recovering/Resolving]
  - Musculoskeletal chest pain [Recovering/Resolving]
  - Pain [Recovering/Resolving]
  - Cough [Recovering/Resolving]
  - Malaise [Recovering/Resolving]
  - Gastrointestinal pain [Recovering/Resolving]
  - Osteoarthritis [Unknown]
  - Asthma [Unknown]
